FAERS Safety Report 5200684-4 (Version None)
Quarter: 2006Q4

REPORT INFORMATION
  Report Type: 
  Country: None (occurrence: None)
  Receive Date: 20061016
  Receipt Date: 20060629
  Transmission Date: 20070319
  Serious: No
  Sender: FDA-Public Use
  Company Number: 2006SP002597

PATIENT
  Age: 30 Year
  Sex: Female

DRUGS (5)
  1. LUNESTA [Suspect]
     Indication: INSOMNIA
     Dosage: SEE IMAGE
     Route: 048
     Dates: start: 20051201, end: 20060601
  2. LUNESTA [Suspect]
     Indication: INSOMNIA
     Dosage: SEE IMAGE
     Route: 048
     Dates: start: 20060601
  3. LAMOTRIGINE [Concomitant]
  4. ARIPIPRAZOLE [Concomitant]
  5. XANAX [Concomitant]

REACTIONS (1)
  - INSOMNIA [None]
